FAERS Safety Report 10871349 (Version 5)
Quarter: 2015Q2

REPORT INFORMATION
  Report Type: Report from Study
  Country: PL (occurrence: PL)
  Receive Date: 20150226
  Receipt Date: 20150507
  Transmission Date: 20150821
  Serious: Yes (Hospitalization)
  Sender: FDA-Public Use
  Company Number: PL-AMGEN-POLCT2015016906

PATIENT
  Age: 74 Year
  Sex: Female
  Weight: 60.1 kg

DRUGS (17)
  1. ATORVASTEROL [Concomitant]
     Indication: HYPERLIPIDAEMIA
     Dosage: 20 MG, QD
     Route: 048
     Dates: start: 201311
  2. OSTEOVIT                           /00107901/ [Concomitant]
     Indication: BONE LESION
     Dosage: 1000 MG, UNK
     Route: 048
     Dates: start: 20140609
  3. PIRAMIL [Concomitant]
     Indication: HYPERTENSION
     Dosage: 7.5 MG, QD
     Route: 048
     Dates: start: 20141020
  4. POLOCARD [Concomitant]
     Active Substance: ASPIRIN
     Indication: MYOCARDIAL INFARCTION
     Dosage: 150 MG, QD
     Route: 048
     Dates: start: 201502
  5. PREDNISONE. [Suspect]
     Active Substance: PREDNISONE
     Indication: PLASMA CELL MYELOMA
     Dosage: 100 MG, PER CHEMO REGIM
     Route: 048
     Dates: start: 20140630
  6. TEGRETOL [Concomitant]
     Active Substance: CARBAMAZEPINE
     Indication: PROPHYLAXIS
     Dosage: 600 MG, UNK
     Route: 048
     Dates: start: 20140722
  7. FUROSEMID                          /00032601/ [Concomitant]
     Active Substance: FUROSEMIDE
     Indication: CARDIAC FAILURE
     Dosage: 40 MG, BID
     Route: 048
     Dates: start: 20150101
  8. CARFILZOMIB [Suspect]
     Active Substance: CARFILZOMIB
     Indication: PLASMA CELL MYELOMA
     Dosage: 36 MG/M2, PER CHEMO REGIM
     Route: 042
     Dates: start: 20140630
  9. MELPHALAN [Suspect]
     Active Substance: MELPHALAN
     Indication: PLASMA CELL MYELOMA
     Dosage: 14 MG, PER CHEMO REGIM
     Route: 048
     Dates: start: 20140630
  10. PADOLTEN [Concomitant]
     Indication: CANCER PAIN
     Dosage: 1 UNIT, BID
     Route: 048
     Dates: start: 20140609
  11. KALIPOZ [Concomitant]
     Active Substance: POTASSIUM CHLORIDE
     Indication: ARRHYTHMIA PROPHYLAXIS
     Dosage: UNK, BID
     Route: 048
     Dates: start: 201502
  12. BIOSOTAL [Concomitant]
     Indication: ARRHYTHMIA PROPHYLAXIS
     Dosage: 40 MG, BID
     Route: 048
     Dates: start: 201502
  13. HEVIRAN                            /00587301/ [Concomitant]
     Indication: ANTIVIRAL PROPHYLAXIS
     Dosage: 400 MG, QD
     Route: 048
     Dates: start: 20140630
  14. NOLPAZA [Concomitant]
     Active Substance: PANTOPRAZOLE SODIUM
     Indication: GASTRITIS PROPHYLAXIS
     Dosage: 20 MG, UNK
     Route: 048
     Dates: start: 201412
  15. ZARZIO [Concomitant]
     Active Substance: FILGRASTIM
     Indication: NEUTROPENIA
     Dosage: 300 MUG, UNK
     Route: 058
     Dates: start: 20150204, end: 20150208
  16. BETASERC                           /00141801/ [Concomitant]
     Indication: SYNCOPE
     Dosage: 12 MG, BID
     Route: 048
     Dates: start: 201412
  17. METOCLOPRAMID                      /00041901/ [Concomitant]
     Indication: PROPHYLAXIS OF NAUSEA AND VOMITING
     Dosage: 40 MG, AS NECESSARY
     Route: 048
     Dates: start: 20150120

REACTIONS (1)
  - Atrial fibrillation [Recovered/Resolved]

NARRATIVE: CASE EVENT DATE: 20150217
